FAERS Safety Report 7096511-3 (Version None)
Quarter: 2010Q4

REPORT INFORMATION
  Report Type: 
  Country: None (occurrence: None)
  Receive Date: 20101111
  Receipt Date: 20101105
  Transmission Date: 20110411
  Serious: Yes (Hospitalization, Congenital Anomaly)
  Sender: FDA-Public Use
  Company Number: A0871469A

PATIENT
  Sex: Male
  Weight: 4.1 kg

DRUGS (4)
  1. PAXIL [Suspect]
  2. ZOLOFT [Concomitant]
     Indication: DEPRESSION
     Route: 048
     Dates: start: 20020801, end: 20020801
  3. PROZAC [Concomitant]
     Indication: DEPRESSION
     Route: 048
     Dates: start: 20020927, end: 20021201
  4. CELEXA [Concomitant]
     Indication: DEPRESSION
     Route: 048
     Dates: start: 20030218

REACTIONS (2)
  - CRANIOSYNOSTOSIS [None]
  - DRUG EXPOSURE DURING PREGNANCY [None]
